FAERS Safety Report 8139710-1 (Version None)
Quarter: 2012Q1

REPORT INFORMATION
  Report Type: 
  Country: None (occurrence: None)
  Receive Date: 20120215
  Receipt Date: 20120210
  Transmission Date: 20120608
  Serious: Yes (Other)
  Sender: FDA-Public Use
  Company Number: PHHY2012CA012388

PATIENT
  Sex: Male

DRUGS (1)
  1. ZOMETA [Suspect]
     Indication: PROSTATE CANCER
     Dosage: 4 MG, EVERY 4 WEEKS
     Route: 042
     Dates: start: 20101218, end: 20110820

REACTIONS (2)
  - TOOTH DISORDER [None]
  - OSTEOMYELITIS [None]
